FAERS Safety Report 10307477 (Version 2)
Quarter: 2014Q3

REPORT INFORMATION
  Report Type: Report from Study
  Country: TW (occurrence: TW)
  Receive Date: 20140716
  Receipt Date: 20140716
  Transmission Date: 20150326
  Serious: Yes (Hospitalization)
  Sender: FDA-Public Use
  Company Number: PHHY2012TW108215

PATIENT

DRUGS (2)
  1. MYFORTIC [Concomitant]
     Active Substance: MYCOPHENOLATE SODIUM
  2. CERTICAN [Suspect]
     Active Substance: EVEROLIMUS
     Indication: IMMUNOSUPPRESSION
     Dosage: 0.5 MG, UNK
     Route: 048
     Dates: start: 20120821, end: 20121105

REACTIONS (4)
  - BK virus infection [Recovered/Resolved]
  - Kidney transplant rejection [Recovered/Resolved]
  - C-reactive protein increased [Recovered/Resolved]
  - Blood creatinine decreased [Recovered/Resolved]

NARRATIVE: CASE EVENT DATE: 20121030
